FAERS Safety Report 7723957-X (Version None)
Quarter: 2011Q3

REPORT INFORMATION
  Report Type: 
  Country: None (occurrence: None)
  Receive Date: 20110901
  Receipt Date: 20110818
  Transmission Date: 20111222
  Serious: Yes (Other)
  Sender: FDA-Public Use
  Company Number: US-ELI_LILLY_AND_COMPANY-US201102003689

PATIENT
  Sex: Female

DRUGS (1)
  1. FORTEO [Suspect]
     Dosage: UNK, UNKNOWN
     Route: 065

REACTIONS (11)
  - FOOT FRACTURE [None]
  - TREMOR [None]
  - NOSE DEFORMITY [None]
  - PELVIC FRACTURE [None]
  - HAND FRACTURE [None]
  - BLOOD CALCIUM INCREASED [None]
  - RIB FRACTURE [None]
  - HIP FRACTURE [None]
  - NEOPLASM [None]
  - BRONCHITIS [None]
  - SPINAL FRACTURE [None]
